FAERS Safety Report 4412817-8 (Version None)
Quarter: 2004Q3

REPORT INFORMATION
  Report Type: 
  Country: None (occurrence: None)
  Receive Date: 20040802
  Receipt Date: 20040722
  Transmission Date: 20050211
  Serious: Yes (Other)
  Sender: FDA-Public Use
  Company Number: US-MERCK-0407USA01880

PATIENT
  Sex: Female

DRUGS (3)
  1. [THERAPY UNSPECIFIED] [Concomitant]
     Route: 065
  2. FOSAMAX [Suspect]
     Route: 048
  3. VITAMINS (UNSPECIFIED) [Concomitant]
     Route: 065

REACTIONS (5)
  - ABNORMAL FAECES [None]
  - COLOSTOMY [None]
  - GASTROINTESTINAL DISORDER [None]
  - INTESTINAL STOMA COMPLICATION [None]
  - PHARMACEUTICAL PRODUCT COMPLAINT [None]
